FAERS Safety Report 4466456-3 (Version None)
Quarter: 2004Q4

REPORT INFORMATION
  Report Type: 
  Country: None (occurrence: None)
  Receive Date: 20041005
  Receipt Date: 20040929
  Transmission Date: 20050328
  Serious: Yes (Hospitalization)
  Sender: FDA-Public Use
  Company Number: FR-MERCK-0410FRA00002

PATIENT
  Age: 48 Year
  Sex: Male

DRUGS (4)
  1. ACARBOSE [Concomitant]
     Indication: DIABETES MELLITUS
     Route: 048
  2. GLICLAZIDE [Concomitant]
     Indication: DIABETES MELLITUS
     Route: 048
  3. LEVOTHYROXINE SODIUM [Concomitant]
     Indication: HYPOTHYROIDISM
     Route: 048
  4. VIOXX [Suspect]
     Route: 048
     Dates: end: 20040422

REACTIONS (2)
  - ANAEMIA [None]
  - HAEMATOCHEZIA [None]
